FAERS Safety Report 11251927 (Version 2)
Quarter: 2015Q3

REPORT INFORMATION
  Report Type: Spontaneous
  Country: US (occurrence: US)
  Receive Date: 20150708
  Receipt Date: 20150903
  Transmission Date: 20151125
  Serious: Yes (Other)
  Sender: FDA-Public Use
  Company Number: US-ELI_LILLY_AND_COMPANY-US201210002154

PATIENT

DRUGS (3)
  1. CYMBALTA [Suspect]
     Active Substance: DULOXETINE HYDROCHLORIDE
     Indication: PAIN
  2. PROZAC [Suspect]
     Active Substance: FLUOXETINE HYDROCHLORIDE
     Dosage: UNK
  3. REMERON [Concomitant]
     Active Substance: MIRTAZAPINE
     Dosage: UNK

REACTIONS (14)
  - Dizziness [Unknown]
  - Diarrhoea [Unknown]
  - Vertigo [Unknown]
  - Irritability [Unknown]
  - Vomiting [Unknown]
  - Lethargy [Unknown]
  - Drug ineffective [Recovered/Resolved]
  - Pain [Unknown]
  - Pruritus [Unknown]
  - Headache [Unknown]
  - Vision blurred [Unknown]
  - Drug withdrawal syndrome [Unknown]
  - Hyperhidrosis [Unknown]
  - Nausea [Unknown]
